FAERS Safety Report 4335245-2 (Version None)
Quarter: 2004Q2

REPORT INFORMATION
  Report Type: 
  Country: None (occurrence: None)
  Receive Date: 20040408
  Receipt Date: 20040401
  Transmission Date: 20050107
  Serious: Yes (Hospitalization, Other)
  Sender: FDA-Public Use
  Company Number: AU-MERCK-0404AUS00002

PATIENT
  Sex: Female

DRUGS (1)
  1. FOSAMAX [Suspect]
     Route: 048
     Dates: start: 20011201, end: 20030101

REACTIONS (2)
  - GALLBLADDER DISORDER [None]
  - PANCREATITIS ACUTE [None]
